FAERS Safety Report 6675370-4 (Version None)
Quarter: 2010Q2

REPORT INFORMATION
  Report Type: 
  Country: None (occurrence: None)
  Receive Date: 20100409
  Receipt Date: 20100305
  Transmission Date: 20101027
  Serious: No
  Sender: FDA-Public Use
  Company Number: A0848672A

PATIENT
  Age: 54 Year
  Sex: Female

DRUGS (2)
  1. TYKERB [Suspect]
     Indication: BREAST CANCER
     Dosage: 3TAB PER DAY
     Route: 048
     Dates: start: 20091101
  2. HERCEPTIN [Concomitant]

REACTIONS (12)
  - ACNE [None]
  - ALOPECIA [None]
  - DIARRHOEA [None]
  - HYPOAESTHESIA [None]
  - LEFT VENTRICULAR DYSFUNCTION [None]
  - NAIL GROWTH ABNORMAL [None]
  - NAUSEA [None]
  - ONYCHOCLASIS [None]
  - PARAESTHESIA [None]
  - RASH [None]
  - ROSACEA [None]
  - WEIGHT DECREASED [None]
